FAERS Safety Report 24390581 (Version 3)
Quarter: 2024Q4

REPORT INFORMATION
  Report Type: Report from Study
  Country: PT (occurrence: PT)
  Receive Date: 20241003
  Receipt Date: 20241007
  Transmission Date: 20250115
  Serious: Yes (Death, Hospitalization)
  Sender: ABBVIE
  Company Number: PT-ABBVIE-5945216

PATIENT
  Age: 88 Year
  Sex: Female

DRUGS (13)
  1. CARBIDOPA\LEVODOPA [Suspect]
     Active Substance: CARBIDOPA\LEVODOPA
     Indication: Parkinson^s disease
     Dosage: FORM STRENGTH:20 MILLIGRAM+ 5 MILLIGRAM (VIA PEG), FREQUENCY TEXT: MORN:8.5ML;MAINT:4.1ML/H;EXTR:2ML
     Route: 050
     Dates: start: 2024, end: 20241002
  2. CARBIDOPA\LEVODOPA [Suspect]
     Active Substance: CARBIDOPA\LEVODOPA
     Dosage: FORM STRENGTH:20 MILLIGRAM+ 5 MILLIGRAM?FREQUENCY TEXT: MORN:4ML;MAINT:2.6ML/H;EXTR:1ML
     Route: 050
     Dates: start: 20221109
  3. CARBIDOPA\LEVODOPA [Suspect]
     Active Substance: CARBIDOPA\LEVODOPA
     Dosage: FORM STRENGTH:20 MILLIGRAM+ 5 MILLIGRAM (VIA PEG)
     Route: 050
     Dates: start: 20230208, end: 2024
  4. CLONAZEPAM [Concomitant]
     Active Substance: CLONAZEPAM
     Indication: Product used for unknown indication
     Dosage: FORM STRENGTH: 0.5 MILLIGRAM?PRODUCT (CLONAZEPAM) - FREQUENCY TEXT: 1 TABLET AT BEDTIME
     Dates: start: 202304
  5. DONEPEZIL [Concomitant]
     Active Substance: DONEPEZIL
     Indication: Product used for unknown indication
     Dosage: 1 TABLET?FORM STRENGTH: 5 MILLIGRAM?FREQUENCY TEXT: AT BREAKFAST?FIRST ADMIN DATE: APR 2023
     Route: 048
  6. DONEPEZIL [Concomitant]
     Active Substance: DONEPEZIL
     Indication: Product used for unknown indication
     Dosage: 1 TABLET?FORM STRENGTH: 5 MILLIGRAM?- FREQUENCY TEXT: AT BEDTIME? START DATE TEXT: BEFORE DUODOPA
     Route: 048
     Dates: end: 202304
  7. LOSARTAN [Concomitant]
     Active Substance: LOSARTAN
     Indication: Product used for unknown indication
     Dosage: 1 TABLET?FORM STRENGTH: 50 MILLIGRAM?PRODUCT (LOSARTAN) - FREQUENCY TEXT: AT BREAKFAST?PRODUCT (L...
     Route: 048
  8. LACIDIPINE [Concomitant]
     Active Substance: LACIDIPINE
     Indication: Product used for unknown indication
     Dosage: 1 TABLET?FORM STRENGTH: 4 MILLIGRAM?FREQUENCY TEXT: AT DINNER?- START DATE TEXT: BEFORE DUODOPA
     Route: 048
  9. CLOPIDOGREL [Concomitant]
     Active Substance: CLOPIDOGREL BISULFATE
     Indication: Product used for unknown indication
     Dosage: 1 TABLET?FORM STRENGTH: 75 MILLIGRAM?- FREQUENCY TEXT: AT LUNCH? START DATE TEXT: BEFORE DUODOPA
     Route: 048
  10. OMEPRAZOLE [Concomitant]
     Active Substance: OMEPRAZOLE
     Indication: Product used for unknown indication
     Dosage: 1 TABLET?FORM STRENGTH: 20 MILLIGRAM?PRODUCT (OMEPRAZOLE) - FREQUENCY TEXT: AT FASTING?PRODUCT (O...
     Route: 048
  11. DULOXETINE [Concomitant]
     Active Substance: DULOXETINE
     Indication: Product used for unknown indication
     Dosage: 1 TABLET?FORM STRENGTH: 30 MILLIGRAM?PRODUCT (DULOXETINE) - FREQUENCY TEXT: AT BREAKFAST?PRODUCT ...
     Route: 048
  12. GABAPENTIN [Concomitant]
     Active Substance: GABAPENTIN
     Indication: Product used for unknown indication
     Dosage: 1 TABLET?FORM STRENGTH: 100 MILLIGRAM?PRODUCT (GABAPENTIN) - FREQUENCY TEXT: AT BEDTIME?PRODUCT (...
  13. OXYGEN [Concomitant]
     Active Substance: OXYGEN
     Indication: Product used for unknown indication

REACTIONS (5)
  - Cardio-respiratory arrest [Fatal]
  - Respiratory tract infection [Not Recovered/Not Resolved]
  - Dysphagia [Not Recovered/Not Resolved]
  - Breath sounds abnormal [Not Recovered/Not Resolved]
  - Fatigue [Not Recovered/Not Resolved]

NARRATIVE: CASE EVENT DATE: 20240925
